FAERS Safety Report 8175138-6 (Version None)
Quarter: 2012Q1

REPORT INFORMATION
  Report Type: 
  Country: None (occurrence: None)
  Receive Date: 20120229
  Receipt Date: 20120223
  Transmission Date: 20120608
  Serious: Yes (Death, Hospitalization, Other)
  Sender: FDA-Public Use
  Company Number: PHHY2012FR012934

PATIENT
  Age: 68 Year
  Sex: Male
  Weight: 85 kg

DRUGS (6)
  1. PLAVIX [Concomitant]
     Indication: ARTERIAL DISORDER
  2. CRESTOR [Concomitant]
     Indication: DYSLIPIDAEMIA
  3. TASIGNA [Suspect]
     Indication: CHRONIC MYELOID LEUKAEMIA
     Dosage: 800 MG, DAILY
     Route: 048
     Dates: start: 20080422, end: 20100209
  4. TASIGNA [Suspect]
     Dosage: 600 MG, DAILY
     Route: 048
     Dates: start: 20110408
  5. BISOPROLOL FUMARATE [Concomitant]
     Indication: HYPERTENSION
  6. ZESTRIL [Concomitant]
     Indication: ARTERIAL DISORDER

REACTIONS (9)
  - CONFUSIONAL STATE [None]
  - METASTASES TO BONE [None]
  - PERIPHERAL ISCHAEMIA [None]
  - OSTEOLYSIS [None]
  - NECROSIS [None]
  - GENERAL PHYSICAL CONDITION ABNORMAL [None]
  - ANGIOSARCOMA METASTATIC [None]
  - NEOPLASM MALIGNANT [None]
  - HYPERCALCAEMIA OF MALIGNANCY [None]
